FAERS Safety Report 9160012 (Version 2)
Quarter: 2013Q1

REPORT INFORMATION
  Report Type: Spontaneous
  Country: US (occurrence: US)
  Receive Date: 20130313
  Receipt Date: 20130321
  Transmission Date: 20140127
  Serious: Yes (Death, Hospitalization)
  Sender: FDA-Public Use
  Company Number: US-ELI_LILLY_AND_COMPANY-US201303002191

PATIENT
  Age: 59 Year
  Sex: Male

DRUGS (2)
  1. EFFIENT [Suspect]
     Indication: PERCUTANEOUS CORONARY INTERVENTION
     Dosage: 60 MG, SINGLE
     Route: 048
     Dates: start: 20130304, end: 20130304
  2. ANGIOMAX [Concomitant]

REACTIONS (3)
  - Death [Fatal]
  - Thrombosis in device [Unknown]
  - Drug ineffective [Unknown]
